FAERS Safety Report 8907829 (Version 2)
Quarter: 2012Q4

REPORT INFORMATION
  Report Type: 
  Country: NL (occurrence: NL)
  Receive Date: 20121114
  Receipt Date: 20121119
  Transmission Date: 20130627
  Serious: No
  Sender: FDA-Public Use
  Company Number: NL-AMGEN-NLDSP2012071618

PATIENT
  Sex: Male

DRUGS (2)
  1. ENBREL [Suspect]
     Indication: PSORIASIS
     Dosage: 50 mg, 2x/week
     Dates: start: 20101116
  2. ENBREL [Suspect]
     Dosage: 50 mg, weekly
     Dates: end: 20121031

REACTIONS (1)
  - Neuropathy peripheral [Unknown]
